FAERS Safety Report 23084631 (Version 22)
Quarter: 2025Q4

REPORT INFORMATION
  Report Type: Report from Study
  Country: US (occurrence: US)
  Receive Date: 20231019
  Receipt Date: 20251229
  Transmission Date: 20260117
  Serious: Yes (Hospitalization, Other)
  Sender: SANDOZ
  Company Number: US-002147023-NVSC2022US170245

PATIENT
  Sex: Female
  Weight: 93.424 kg

DRUGS (49)
  1. TREPROSTINIL [Suspect]
     Active Substance: TREPROSTINIL
     Indication: Pulmonary arterial hypertension
     Dosage: 2 NG/KG/MIN, CONT
  2. TREPROSTINIL [Suspect]
     Active Substance: TREPROSTINIL
     Dosage: 8 NG/KG/MIN, CONT
  3. TREPROSTINIL [Suspect]
     Active Substance: TREPROSTINIL
     Dosage: 9.25 NG/KG/MIN, CONT
  4. TREPROSTINIL [Suspect]
     Active Substance: TREPROSTINIL
     Dosage: 11.75 NG/KG/MIN, CONT
  5. TREPROSTINIL [Suspect]
     Active Substance: TREPROSTINIL
     Dosage: 15.5 NG/KG/MIN, CONT
  6. TREPROSTINIL [Suspect]
     Active Substance: TREPROSTINIL
     Dosage: 19.25 NG/KG/MIN, CONT
  7. TREPROSTINIL [Suspect]
     Active Substance: TREPROSTINIL
     Dosage: 21.75 NG/KG/MIN, CONT
  8. TREPROSTINIL [Suspect]
     Active Substance: TREPROSTINIL
     Dosage: 24.25 NG/KG/MIN, CONT
  9. TREPROSTINIL [Suspect]
     Active Substance: TREPROSTINIL
     Dosage: 28 NG/KG/MIN, CONT
  10. TREPROSTINIL [Suspect]
     Active Substance: TREPROSTINIL
     Dosage: 31.75 NG/KG/MIN, CONT
  11. TREPROSTINIL [Suspect]
     Active Substance: TREPROSTINIL
     Dosage: 34.25 NG/KG/MIN, CONT
  12. TREPROSTINIL [Suspect]
     Active Substance: TREPROSTINIL
     Dosage: 39.25 NG/KG/MIN, CONT
  13. TREPROSTINIL [Suspect]
     Active Substance: TREPROSTINIL
     Dosage: 44.5 NG/KG/MIN
  14. TREPROSTINIL [Suspect]
     Active Substance: TREPROSTINIL
     Dosage: UNK, CONT, 50 NG/KG/MIN
  15. TREPROSTINIL [Suspect]
     Active Substance: TREPROSTINIL
     Dosage: 59 NG/KG/ MIN ,CONT
  16. TREPROSTINIL [Suspect]
     Active Substance: TREPROSTINIL
     Dosage: 72 NG/KG/MIN CONTINUOUS
  17. TREPROSTINIL [Suspect]
     Active Substance: TREPROSTINIL
     Dosage: 78 NG/KG/MIN
  18. TREPROSTINIL [Suspect]
     Active Substance: TREPROSTINIL
     Dosage: UNK, CONT, 80 NG/KG/MIN
  19. TREPROSTINIL [Suspect]
     Active Substance: TREPROSTINIL
     Dosage: 36.75 NG/KG/ MIN, CONT
  20. TREPROSTINIL [Suspect]
     Active Substance: TREPROSTINIL
     Dosage: 60 NG/KG/ MIN, CONT
  21. TREPROSTINIL [Suspect]
     Active Substance: TREPROSTINIL
     Dosage: 76 NG/KG/MIN, CONT
  22. TREPROSTINIL [Suspect]
     Active Substance: TREPROSTINIL
     Dosage: 80 NG/KG/MIN CONT
  23. WINREVAIR [Suspect]
     Active Substance: SOTATERCEPT-CSRK
     Indication: Product used for unknown indication
     Dosage: UNK (START DATE: 22-DEC-2025)
  24. SILDENAFIL CITRATE [Concomitant]
     Active Substance: SILDENAFIL CITRATE
     Indication: Product used for unknown indication
     Dosage: UNK
  25. CEFTRIAXONE [Concomitant]
     Active Substance: CEFTRIAXONE
     Indication: Product used for unknown indication
     Dosage: UNK
  26. SULFAMETHOXAZOLE [Concomitant]
     Active Substance: SULFAMETHOXAZOLE
     Indication: Product used for unknown indication
     Dosage: UNK
  27. UPTRAVI [Concomitant]
     Active Substance: SELEXIPAG
     Indication: Product used for unknown indication
     Dosage: UNK
  28. STERILE WATER [Concomitant]
     Active Substance: WATER
     Indication: Product used for unknown indication
  29. FLUOXETINE HYDROCHLORIDE [Concomitant]
     Active Substance: FLUOXETINE HYDROCHLORIDE
     Indication: Product used for unknown indication
  30. POTASSIUM CHLORIDE [Concomitant]
     Active Substance: POTASSIUM CHLORIDE
     Indication: Product used for unknown indication
  31. OXCARBAZEPINE [Concomitant]
     Active Substance: OXCARBAZEPINE
     Indication: Product used for unknown indication
  32. ALBUTEROL SULFATE [Concomitant]
     Active Substance: ALBUTEROL SULFATE
     Indication: Product used for unknown indication
  33. OLANZAPINE [Concomitant]
     Active Substance: OLANZAPINE
     Indication: Product used for unknown indication
  34. FOLIC ACID [Concomitant]
     Active Substance: FOLIC ACID
     Indication: Product used for unknown indication
  35. VITAMIN B12 [Concomitant]
     Active Substance: CYANOCOBALAMIN
     Indication: Product used for unknown indication
  36. IRON [Concomitant]
     Active Substance: IRON
     Indication: Product used for unknown indication
  37. METFORMIN HYDROCHLORIDE [Concomitant]
     Active Substance: METFORMIN HYDROCHLORIDE
     Indication: Product used for unknown indication
  38. MORPHINE SULFATE [Concomitant]
     Active Substance: MORPHINE SULFATE
     Indication: Product used for unknown indication
  39. SPIRONOLACTONE [Concomitant]
     Active Substance: SPIRONOLACTONE
     Indication: Product used for unknown indication
  40. CEFAZOLIN [Concomitant]
     Active Substance: CEFAZOLIN
     Indication: Product used for unknown indication
  41. FUROSEMIDE [Concomitant]
     Active Substance: FUROSEMIDE
     Indication: Product used for unknown indication
  42. KLONOPIN [Concomitant]
     Active Substance: CLONAZEPAM
     Indication: Product used for unknown indication
  43. CEFAZOLIN SODIUM [Concomitant]
     Active Substance: CEFAZOLIN SODIUM
     Indication: Product used for unknown indication
  44. OZEMPIC [Concomitant]
     Active Substance: SEMAGLUTIDE
     Indication: Product used for unknown indication
  45. SYMBICORT [Concomitant]
     Active Substance: BUDESONIDE\FORMOTEROL FUMARATE DIHYDRATE
     Indication: Product used for unknown indication
  46. PERCOCET [Concomitant]
     Active Substance: ACETAMINOPHEN\OXYCODONE HYDROCHLORIDE
     Indication: Product used for unknown indication
     Dosage: UNK
  47. CYMBALTA [Concomitant]
     Active Substance: DULOXETINE HYDROCHLORIDE
     Indication: Product used for unknown indication
     Dosage: UNK
  48. TREPROSTINIL [Concomitant]
     Active Substance: TREPROSTINIL
     Indication: Product used for unknown indication
     Dosage: UNK
  49. BUMETANIDE [Concomitant]
     Active Substance: BUMETANIDE
     Indication: Product used for unknown indication
     Dosage: UNK

REACTIONS (57)
  - Pulmonary oedema [Unknown]
  - Myocardial infarction [Unknown]
  - Syncope [Unknown]
  - Syncope [Unknown]
  - Catheter site thrombosis [Unknown]
  - Respiratory failure [Unknown]
  - Device related infection [Unknown]
  - Vascular device infection [Unknown]
  - Infection [Unknown]
  - Oedema peripheral [Unknown]
  - Lung disorder [Unknown]
  - Cardiac disorder [Unknown]
  - Lung disorder [Unknown]
  - Presyncope [Unknown]
  - Central venous catheterisation [Unknown]
  - Hospitalisation [Unknown]
  - Haematological infection [Unknown]
  - Chest pain [Unknown]
  - Hypotension [Unknown]
  - Blood pressure decreased [Unknown]
  - Chest pain [Unknown]
  - Head injury [Unknown]
  - Syncope [Unknown]
  - Myocardial infarction [Unknown]
  - Seizure [Unknown]
  - Pericardial effusion [Unknown]
  - Pulmonary hypertension [Unknown]
  - Thrombosis [Unknown]
  - Complication associated with device [Unknown]
  - Vascular access complication [Unknown]
  - Cellulitis [Unknown]
  - Haemoglobin decreased [Unknown]
  - Chills [Not Recovered/Not Resolved]
  - Hypoaesthesia oral [Unknown]
  - Tremor [Unknown]
  - Weight increased [Unknown]
  - Weight decreased [Unknown]
  - Paraesthesia [Recovered/Resolved]
  - Haemorrhage [Unknown]
  - Flushing [Unknown]
  - Suture related complication [Unknown]
  - Pain [Unknown]
  - Foreign body [Unknown]
  - Suture rupture [Unknown]
  - Blood creatinine increased [Unknown]
  - Complication associated with device [Unknown]
  - Depression [Unknown]
  - Dizziness [Unknown]
  - Complication associated with device [Unknown]
  - Chest pain [Unknown]
  - Dyspnoea exertional [Not Recovered/Not Resolved]
  - Oedema peripheral [Unknown]
  - Catheter site irritation [Unknown]
  - Catheter site pruritus [Unknown]
  - Infusion site infection [Unknown]
  - Rash [Unknown]
  - Vomiting [Unknown]

NARRATIVE: CASE EVENT DATE: 20230101
